FAERS Safety Report 24989559 (Version 1)
Quarter: 2025Q1

REPORT INFORMATION
  Report Type: Report from Study
  Country: IN (occurrence: IN)
  Receive Date: 20250220
  Receipt Date: 20250220
  Transmission Date: 20250408
  Serious: Yes (Death, Hospitalization)
  Sender: ROCHE
  Company Number: IN-ROCHE-3487519

PATIENT
  Age: 56 Year
  Sex: Female
  Weight: 50.0 kg

DRUGS (25)
  1. KADCYLA [Suspect]
     Active Substance: ADO-TRASTUZUMAB EMTANSINE
     Indication: Breast cancer metastatic
     Route: 065
     Dates: start: 20200219
  2. KADCYLA [Suspect]
     Active Substance: ADO-TRASTUZUMAB EMTANSINE
     Route: 040
     Dates: start: 20170418
  3. LEVETIRACETAM [Concomitant]
     Active Substance: LEVETIRACETAM
     Indication: Seizure
     Route: 040
     Dates: start: 20250203, end: 20250211
  4. ALPRAX PLUS [Concomitant]
     Indication: Anxiety
     Route: 048
     Dates: start: 20250203, end: 20250210
  5. ALPRAX PLUS [Concomitant]
     Indication: Panic disorder
  6. CLOTRIMAZOLE [Concomitant]
     Active Substance: CLOTRIMAZOLE
     Indication: Fungal infection
     Dosage: 30ML
     Route: 061
     Dates: start: 20250203, end: 20250211
  7. ADDKAY [Concomitant]
     Dosage: KIDNEY
     Route: 048
     Dates: start: 20250203, end: 20250211
  8. CALCIUM\CHOLECALCIFEROL [Concomitant]
     Active Substance: CALCIUM\CHOLECALCIFEROL
     Route: 048
     Dates: start: 20250203, end: 20250211
  9. DERIDINE [Concomitant]
     Indication: Hypersensitivity
     Dosage: 1MG/2ML 1 RESPIRATION
     Route: 055
     Dates: start: 20250203, end: 20250211
  10. MEGASTY [Concomitant]
     Indication: Decreased appetite
     Route: 048
     Dates: start: 20250203, end: 20250211
  11. METHYLCOBALAMIN [Concomitant]
     Active Substance: METHYLCOBALAMIN
     Indication: Vitamin B12
     Route: 048
     Dates: start: 20250203, end: 20250211
  12. SACCHAROMYCES CEREVISIAE [Concomitant]
     Active Substance: SACCHAROMYCES CEREVISIAE
     Route: 048
     Dates: start: 20250203, end: 20250211
  13. NEFROSAVE [Concomitant]
     Route: 048
     Dates: start: 20250203, end: 20250211
  14. SODIUM BICARBONATE [Concomitant]
     Active Substance: SODIUM BICARBONATE
     Indication: Dyspepsia
     Route: 048
     Dates: start: 20250203, end: 20250211
  15. SODIUM BICARBONATE [Concomitant]
     Active Substance: SODIUM BICARBONATE
     Indication: Dyspepsia
  16. ONDANSETRON [Concomitant]
     Active Substance: ONDANSETRON
     Indication: Chemotherapy
     Dosage: 2MG/ML
     Route: 040
     Dates: start: 20250203, end: 20250211
  17. ONDANSETRON [Concomitant]
     Active Substance: ONDANSETRON
     Indication: Radiotherapy
  18. ONDANSETRON [Concomitant]
     Active Substance: ONDANSETRON
     Indication: Vomiting
  19. BUDESONIDE\FORMOTEROL FUMARATE [Concomitant]
     Active Substance: BUDESONIDE\FORMOTEROL FUMARATE
     Indication: Asthma
     Dosage: 1 RESEPULE
     Route: 055
     Dates: start: 20250203, end: 20250211
  20. ACETAMINOPHEN [Concomitant]
     Active Substance: ACETAMINOPHEN
     Indication: Pain
     Route: 040
     Dates: start: 20250203, end: 20250211
  21. BIO D3 MAX [Concomitant]
     Indication: Vitamin D
     Route: 048
     Dates: start: 20250203, end: 20250211
  22. ROMIPLOSTIM [Concomitant]
     Active Substance: ROMIPLOSTIM
     Indication: Platelet count
     Route: 058
     Dates: start: 20241213, end: 20241213
  23. ROMY [Concomitant]
     Indication: Platelet count
     Route: 058
     Dates: start: 20241121, end: 20241121
  24. ENCICARB [Concomitant]
     Indication: Blood iron
     Route: 040
     Dates: start: 20241121, end: 20241213
  25. IRON [Concomitant]
     Active Substance: IRON
     Indication: Blood iron
     Route: 040
     Dates: start: 20241111, end: 20241111

REACTIONS (27)
  - Blood bilirubin increased [Fatal]
  - Anaemia [Recovering/Resolving]
  - Blood creatinine increased [Recovering/Resolving]
  - Hypoalbuminaemia [Recovering/Resolving]
  - Protein total decreased [Fatal]
  - Blood albumin decreased [Fatal]
  - Haemoglobin increased [Fatal]
  - White blood cell count increased [Recovered/Resolved]
  - Red blood cell count decreased [Fatal]
  - Neutrophil count increased [Recovered/Resolved]
  - Lymphocyte count decreased [Fatal]
  - Blood urea increased [Fatal]
  - Blood urea increased [Fatal]
  - Blood sodium decreased [Fatal]
  - Blood potassium decreased [Fatal]
  - Blood bicarbonate decreased [Fatal]
  - Platelet count decreased [Fatal]
  - Lymphocyte count decreased [Fatal]
  - Eosinophil count increased [Fatal]
  - Blood calcium decreased [Fatal]
  - Blood chloride decreased [Fatal]
  - Ammonia increased [Fatal]
  - Cardiac arrest [Fatal]
  - Tremor [Fatal]
  - Asthenia [Fatal]
  - Seizure [Fatal]
  - Vitamin D decreased [Fatal]

NARRATIVE: CASE EVENT DATE: 20240203
